FAERS Safety Report 12929934 (Version 1)
Quarter: 2016Q4

REPORT INFORMATION
  Report Type: Spontaneous
  Country: US (occurrence: US)
  Receive Date: 20161110
  Receipt Date: 20161110
  Transmission Date: 20170207
  Serious: Yes (Disabling)
  Sender: FDA-Public Use
  Company Number: None

PATIENT
  Age: 12 Year
  Sex: Female
  Weight: 38.25 kg

DRUGS (1)
  1. QVAR [Suspect]
     Active Substance: BECLOMETHASONE DIPROPIONATE
     Indication: ASTHMA
     Dosage: 2 PUFF(S) TWICE A DAY RESPIRATORY (INHALATION)?
     Route: 055
     Dates: start: 20080901, end: 20161001

REACTIONS (2)
  - Lymph node calcification [None]
  - Granuloma [None]

NARRATIVE: CASE EVENT DATE: 20160708
